FAERS Safety Report 14856681 (Version 1)
Quarter: 2018Q2

REPORT INFORMATION
  Report Type: Spontaneous
  Country: US (occurrence: US)
  Receive Date: 20180507
  Receipt Date: 20180507
  Transmission Date: 20180711
  Serious: No
  Sender: FDA-Public Use
  Company Number: US-ROCHE-2049891

PATIENT
  Sex: Male

DRUGS (15)
  1. MOVE FREE JOINT HEALTH (TRIPLE STRENGTH) [Concomitant]
     Route: 065
  2. REGLAN [Concomitant]
     Active Substance: METOCLOPRAMIDE HYDROCHLORIDE
     Route: 065
  3. ESBRIET [Suspect]
     Active Substance: PIRFENIDONE
     Dosage: THEN 3 TABLETS 3 TIMES DAILY
     Route: 048
  4. SPIRONOLACTONE. [Concomitant]
     Active Substance: SPIRONOLACTONE
     Route: 065
  5. PRILOSEC [Concomitant]
     Active Substance: OMEPRAZOLE MAGNESIUM
     Route: 065
  6. PROCARDIA XL [Concomitant]
     Active Substance: NIFEDIPINE
     Route: 065
  7. PROMETHAZINE [Concomitant]
     Active Substance: PROMETHAZINE\PROMETHAZINE HYDROCHLORIDE
     Route: 065
  8. VASOTEC [Concomitant]
     Active Substance: ENALAPRIL MALEATE
     Route: 065
  9. ASPIRIN. [Concomitant]
     Active Substance: ASPIRIN
     Route: 065
  10. LEVOTHYROXINE. [Concomitant]
     Active Substance: LEVOTHYROXINE
     Route: 065
  11. ESBRIET [Suspect]
     Active Substance: PIRFENIDONE
     Indication: IDIOPATHIC PULMONARY FIBROSIS
     Dosage: 1 TABLET BY MOUTH THREE TIMES DAILY FOR 1 WEEK
     Route: 048
     Dates: start: 20171212
  12. GARLIC. [Concomitant]
     Active Substance: GARLIC
     Route: 065
  13. ESBRIET [Suspect]
     Active Substance: PIRFENIDONE
     Dosage: THEN 2 TABLETS THREE TIMES DAILY FOR 1 WEEK
     Route: 048
  14. CINNAMON. [Concomitant]
     Active Substance: CINNAMON
     Route: 065
  15. DOXEPIN HCL [Concomitant]
     Active Substance: DOXEPIN HYDROCHLORIDE
     Route: 065

REACTIONS (1)
  - Insomnia [Not Recovered/Not Resolved]
